FAERS Safety Report 20157831 (Version 15)
Quarter: 2023Q2

REPORT INFORMATION
  Report Type: Report from Study
  Country: KR (occurrence: None)
  Receive Date: 20211207
  Receipt Date: 20230420
  Transmission Date: 20230722
  Serious: Yes (Hospitalization)
  Sender: FDA-Public Use
  Company Number: KR-Eisai Medical Research-EC-2021-104208

PATIENT
  Age: 76 Year
  Sex: Female
  Weight: 64.4 kg

DRUGS (16)
  1. LENVATINIB [Suspect]
     Active Substance: LENVATINIB
     Indication: Endometrial cancer
     Dosage: STARTING DOSE 20 MG, FLUCTUATED DOSAGE
     Route: 048
     Dates: start: 20211103, end: 20211126
  2. LENVATINIB [Suspect]
     Active Substance: LENVATINIB
     Dosage: STARTING DOSE 10 MG, FLUCTUATED DOSAGE
     Route: 048
     Dates: start: 20211130, end: 20220601
  3. PEMBROLIZUMAB [Suspect]
     Active Substance: PEMBROLIZUMAB
     Indication: Endometrial cancer
     Dosage: UNKNOWN
     Route: 041
     Dates: start: 20211103, end: 20211126
  4. PEMBROLIZUMAB [Suspect]
     Active Substance: PEMBROLIZUMAB
     Dosage: UNKNOWN
     Route: 041
     Dates: start: 20211215, end: 20220624
  5. MICARDIS [Concomitant]
     Active Substance: TELMISARTAN
     Dates: start: 20210326, end: 20220602
  6. NEURONTIN [Concomitant]
     Active Substance: GABAPENTIN
     Dates: start: 20210414, end: 20221115
  7. CYMBALTA [Concomitant]
     Active Substance: DULOXETINE HYDROCHLORIDE
     Dates: start: 20210925, end: 20211203
  8. MAGNESIUM OXIDE [Concomitant]
     Active Substance: MAGNESIUM OXIDE
     Dates: start: 20211110, end: 20221115
  9. NORZYME [Concomitant]
     Dates: start: 20211110, end: 20211116
  10. NORVASC [Concomitant]
     Active Substance: AMLODIPINE BESYLATE
     Dates: start: 20211110, end: 20220331
  11. GANAKHAN [Concomitant]
     Dates: start: 20211110, end: 20211116
  12. ENCOVER [Concomitant]
     Dates: start: 20211117, end: 20221115
  13. FERROUS SULFATE [Concomitant]
     Active Substance: FERROUS SULFATE
     Dates: start: 20210602, end: 20211129
  14. MEGESTROL ACETATE [Concomitant]
     Active Substance: MEGESTROL ACETATE
     Dates: start: 20211117, end: 20211222
  15. VIBOSTOLIMAB [Suspect]
     Active Substance: VIBOSTOLIMAB
  16. VIBOSTOLIMAB [Suspect]
     Active Substance: VIBOSTOLIMAB

REACTIONS (1)
  - Fatigue [Recovered/Resolved]

NARRATIVE: CASE EVENT DATE: 20211127
